FAERS Safety Report 8403012-6 (Version None)
Quarter: 2012Q2

REPORT INFORMATION
  Report Type: 
  Country: None (occurrence: None)
  Receive Date: 20120601
  Receipt Date: 20120529
  Transmission Date: 20120825
  Serious: Yes (Hospitalization, Other)
  Sender: FDA-Public Use
  Company Number: US-PFIZER INC-2012129421

PATIENT
  Sex: Female
  Weight: 97.506 kg

DRUGS (4)
  1. PRISTIQ [Suspect]
     Dosage: 100 MG, DAILY
     Dates: start: 20120417, end: 20120501
  2. PRISTIQ [Suspect]
     Indication: DEPRESSION
     Dosage: 50 MG, DAILY
     Dates: start: 20120201
  3. ABILIFY [Concomitant]
     Dosage: UNK
  4. LAMICTAL [Suspect]
     Dosage: UNK

REACTIONS (6)
  - RASH [None]
  - DEPRESSION [None]
  - HYPERSOMNIA [None]
  - CRYING [None]
  - BIPOLAR DISORDER [None]
  - IMPAIRED WORK ABILITY [None]
